FAERS Safety Report 17816742 (Version 2)
Quarter: 2020Q2

REPORT INFORMATION
  Report Type: Spontaneous
  Country: CN (occurrence: CN)
  Receive Date: 20200522
  Receipt Date: 20200526
  Transmission Date: 20200714
  Serious: Yes (Other)
  Sender: FDA-Public Use
  Company Number: CN-PFIZER INC-2020203258

PATIENT
  Age: 56 Year
  Sex: Female

DRUGS (2)
  1. IDEBENONE [Concomitant]
     Active Substance: IDEBENONE
     Indication: THERAPEUTIC PROCEDURE
     Dosage: 30 MG, 3X/DAY
     Route: 048
     Dates: start: 20200506, end: 20200509
  2. ZOLOFT [Suspect]
     Active Substance: SERTRALINE HYDROCHLORIDE
     Indication: DEPRESSION
     Dosage: 50 MG, 1X/DAY
     Route: 048
     Dates: start: 20200506, end: 20200509

REACTIONS (2)
  - Lip oedema [Recovered/Resolved]
  - Face oedema [Recovered/Resolved]

NARRATIVE: CASE EVENT DATE: 20200509
